FAERS Safety Report 16273925 (Version 5)
Quarter: 2019Q4

REPORT INFORMATION
  Report Type: Spontaneous
  Country: US (occurrence: US)
  Receive Date: 20190503
  Receipt Date: 20191021
  Transmission Date: 20200122
  Serious: Yes (Hospitalization)
  Sender: FDA-Public Use
  Company Number: US-RADIUS HEALTH INC.-2019US001377

PATIENT
  Age: 87 Year
  Sex: Female

DRUGS (1)
  1. TYMLOS [Suspect]
     Active Substance: ABALOPARATIDE
     Indication: OSTEOPOROSIS POSTMENOPAUSAL
     Dosage: 80MCG/QD
     Route: 058
     Dates: start: 20190404

REACTIONS (10)
  - Postoperative wound complication [Unknown]
  - Wrong technique in product usage process [Recovered/Resolved]
  - Vertigo [Unknown]
  - Blood pressure abnormal [Unknown]
  - Product quality issue [Unknown]
  - Hypertension [Unknown]
  - Product dose omission [Recovering/Resolving]
  - Dizziness [Unknown]
  - Neck pain [Unknown]
  - Gait disturbance [Unknown]

NARRATIVE: CASE EVENT DATE: 201908
